FAERS Safety Report 6964062-X (Version None)
Quarter: 2010Q3

REPORT INFORMATION
  Report Type: 
  Country: None (occurrence: None)
  Receive Date: 20100902
  Receipt Date: 20100902
  Transmission Date: 20110219
  Serious: Yes (Hospitalization)
  Sender: FDA-Public Use
  Company Number: None

PATIENT
  Age: 64 Year
  Sex: Female
  Weight: 54.4316 kg

DRUGS (2)
  1. AUGMENTIN [Suspect]
     Indication: EAR DISORDER
     Dosage: 1/2 TAB TWICE DAY 047
     Dates: start: 20100618, end: 20100625
  2. AUGMENTIN [Suspect]
     Indication: SINUS HEADACHE
     Dosage: 1/2 TAB TWICE DAY 047
     Dates: start: 20100618, end: 20100625

REACTIONS (6)
  - ABDOMINAL PAIN [None]
  - BLOOD POTASSIUM DECREASED [None]
  - CLOSTRIDIAL INFECTION [None]
  - DEHYDRATION [None]
  - DIARRHOEA [None]
  - HYPOTENSION [None]
